FAERS Safety Report 9535046 (Version 2)
Quarter: 2013Q4

REPORT INFORMATION
  Report Type: Spontaneous
  Country: US (occurrence: US)
  Receive Date: 20130918
  Receipt Date: 20131031
  Transmission Date: 20140711
  Serious: Yes (Other)
  Sender: FDA-Public Use
  Company Number: US-PFIZER INC-2013267513

PATIENT
  Sex: Female

DRUGS (2)
  1. LIPITOR [Suspect]
     Dosage: UNK
  2. ACCUPRIL [Suspect]
     Dosage: UNK
     Dates: end: 2012

REACTIONS (3)
  - Angiopathy [Recovering/Resolving]
  - Cardiac valve disease [Recovering/Resolving]
  - Coronary artery disease [Recovering/Resolving]
